FAERS Safety Report 14246400 (Version 1)
Quarter: 2017Q4

REPORT INFORMATION
  Report Type: Spontaneous
  Country: US (occurrence: None)
  Receive Date: 20171201
  Receipt Date: 20171201
  Transmission Date: 20180321
  Serious: Yes (Hospitalization)
  Sender: FDA-Public Use
  Company Number: None

PATIENT
  Age: 10 Year
  Sex: Male

DRUGS (26)
  1. K CITRATE [Concomitant]
  2. LORATIDINE [Concomitant]
     Active Substance: LORATADINE
  3. KEFLEX [Concomitant]
     Active Substance: CEPHALEXIN
  4. DIAZEPAM. [Concomitant]
     Active Substance: DIAZEPAM
  5. VITAMIN D3 [Concomitant]
     Active Substance: CHOLECALCIFEROL
  6. LOPERAMIDE [Concomitant]
     Active Substance: LOPERAMIDE
  7. PREDNISOLONE. [Concomitant]
     Active Substance: PREDNISOLONE
  8. HCTZ [Concomitant]
     Active Substance: HYDROCHLOROTHIAZIDE
  9. PULMICORT TURBUHALER [Concomitant]
     Active Substance: BUDESONIDE
  10. ALBUTEROL NEB [Concomitant]
  11. TAMSULOSIN [Concomitant]
     Active Substance: TAMSULOSIN
  12. NYSTOP [Concomitant]
     Active Substance: NYSTATIN
  13. RANITIDINE. [Concomitant]
     Active Substance: RANITIDINE
  14. SMZ-TMP [Concomitant]
     Active Substance: SULFAMETHOXAZOLE\TRIMETHOPRIM
  15. FLUTICASONE. [Concomitant]
     Active Substance: FLUTICASONE
  16. TRIAMCINOLONE OINTMENT [Concomitant]
  17. ALBENZA [Concomitant]
     Active Substance: ALBENDAZOLE
  18. TOBRAMYCIN  300MG/5ML [Suspect]
     Active Substance: TOBRAMYCIN
     Indication: CYSTIC FIBROSIS
     Dosage: DOSE - 1 VIAL
     Route: 055
     Dates: start: 20130807
  19. AZITHROMYCIN ANHYDROUS. [Concomitant]
     Active Substance: AZITHROMYCIN ANHYDROUS
  20. NORCO [Concomitant]
     Active Substance: ACETAMINOPHEN\HYDROCODONE BITARTRATE
  21. PULMOZYME [Concomitant]
     Active Substance: DORNASE ALFA
  22. OXYBUTYNIN. [Concomitant]
     Active Substance: OXYBUTYNIN CHLORIDE
  23. SSD CREAM [Concomitant]
     Active Substance: SILVER SULFADIAZINE
  24. D-VI-SOL [Concomitant]
  25. CHLOROTHIAZIDE. [Concomitant]
     Active Substance: CHLOROTHIAZIDE
  26. PERMETHRIN. [Concomitant]
     Active Substance: PERMETHRIN

REACTIONS (1)
  - Pneumonia [None]

NARRATIVE: CASE EVENT DATE: 201711
